FAERS Safety Report 13647963 (Version 3)
Quarter: 2017Q3

REPORT INFORMATION
  Report Type: Other
  Country: US (occurrence: US)
  Receive Date: 20170613
  Receipt Date: 20170803
  Transmission Date: 20171127
  Serious: Yes (Hospitalization, Other)
  Sender: FDA-Public Use
  Company Number: US-ACORDA-ACO_138456_2017

PATIENT
  Age: 69 Year
  Sex: Female

DRUGS (2)
  1. AMPYRA [Suspect]
     Active Substance: DALFAMPRIDINE
     Indication: MULTIPLE SCLEROSIS
     Dosage: 10 MG, BID
     Route: 048
     Dates: start: 201703
  2. LIDOCAINE. [Suspect]
     Active Substance: LIDOCAINE
     Indication: PROCEDURAL PAIN
     Dosage: UNK
     Route: 065

REACTIONS (4)
  - Application site vesicles [Recovered/Resolved]
  - Fall [Recovered/Resolved]
  - Humerus fracture [Recovered/Resolved]
  - Wrist fracture [Recovering/Resolving]

NARRATIVE: CASE EVENT DATE: 20170502
